FAERS Safety Report 25893620 (Version 1)
Quarter: 2025Q4

REPORT INFORMATION
  Report Type: Spontaneous
  Country: EU (occurrence: EU)
  Receive Date: 20251008
  Receipt Date: 20251008
  Transmission Date: 20260118
  Serious: Yes (Hospitalization)
  Sender: Onesource Specialty Pharma
  Company Number: EU-STRIDES ARCOLAB LIMITED-2025OS000835

PATIENT
  Age: 79 Year
  Sex: Female

DRUGS (1)
  1. ACETYLCYSTEINE [Suspect]
     Active Substance: ACETYLCYSTEINE
     Indication: Suspected drug-induced liver injury
     Dosage: A 10-FOLD OVERDOSE
     Route: 042

REACTIONS (5)
  - Laboratory test interference [Unknown]
  - False negative investigation result [Unknown]
  - Accidental overdose [None]
  - Product administration error [Unknown]
  - Off label use [Unknown]
